FAERS Safety Report 8592328-9 (Version None)
Quarter: 2012Q3

REPORT INFORMATION
  Report Type: 
  Country: None (occurrence: None)
  Receive Date: 20120814
  Receipt Date: 20120806
  Transmission Date: 20120928
  Serious: Yes (Hospitalization)
  Sender: FDA-Public Use
  Company Number: US-JNJFOC-20120804448

PATIENT
  Sex: Female
  Weight: 55.5 kg

DRUGS (5)
  1. USTEKINUMAB [Suspect]
     Indication: CROHN'S DISEASE
     Route: 058
     Dates: start: 20111114
  2. METHOTREXATE [Concomitant]
  3. PREDNISONE TAB [Concomitant]
  4. ANTIBIOTICS [Concomitant]
     Indication: IRRITABLE BOWEL SYNDROME
  5. PROBIOTICS [Concomitant]

REACTIONS (1)
  - CROHN'S DISEASE [None]
